FAERS Safety Report 13182361 (Version 1)
Quarter: 2017Q1

REPORT INFORMATION
  Report Type: Spontaneous
  Country: CH (occurrence: CH)
  Receive Date: 20170203
  Receipt Date: 20170203
  Transmission Date: 20170428
  Serious: Yes (Other)
  Sender: FDA-Public Use
  Company Number: CH-APOPHARMA USA, INC.-2017AP006293

PATIENT
  Age: 11 Year
  Sex: Female

DRUGS (6)
  1. ALKERAN [Suspect]
     Active Substance: MELPHALAN
     Indication: RETINOBLASTOMA
     Dosage: 10 MG, OTHER
     Route: 013
  2. ALKERAN [Suspect]
     Active Substance: MELPHALAN
     Dosage: 216 ?G, OTHER
     Route: 050
  3. ACETAZOLAMIDE. [Concomitant]
     Active Substance: ACETAZOLAMIDE
     Indication: OPHTHALMIC FLUID DRAINAGE
     Dosage: 5 MG/KG, UNKNOWN
     Route: 065
  4. ETOPOSIDE. [Concomitant]
     Active Substance: ETOPOSIDE
     Indication: PROPHYLACTIC CHEMOTHERAPY
     Dosage: UNK, Q.M.T.
     Route: 065
  5. CARBOPLATIN. [Concomitant]
     Active Substance: CARBOPLATIN
     Indication: PROPHYLACTIC CHEMOTHERAPY
     Dosage: UNK, Q.M.T.
     Route: 065
  6. ALKERAN [Suspect]
     Active Substance: MELPHALAN
     Dosage: 15.8 ?G, OTHER
     Route: 050

REACTIONS (4)
  - Lenticular opacities [Recovered/Resolved]
  - Recurrent cancer [Recovered/Resolved]
  - Cataract operation [Recovered/Resolved]
  - Heterochromia iridis [Unknown]
